FAERS Safety Report 7475147-6 (Version None)
Quarter: 2011Q2

REPORT INFORMATION
  Report Type: 
  Country: None (occurrence: None)
  Receive Date: 20110509
  Receipt Date: 20110509
  Transmission Date: 20111010
  Serious: Yes (Other)
  Sender: FDA-Public Use
  Company Number: None

PATIENT
  Sex: Female
  Weight: 53.5244 kg

DRUGS (1)
  1. ACTONEL [Suspect]
     Indication: BONE DENSITY DECREASED
     Dosage: 1 PER MONTH PO
     Route: 048
     Dates: start: 20110430

REACTIONS (9)
  - ABDOMINAL PAIN UPPER [None]
  - BONE PAIN [None]
  - MYALGIA [None]
  - MOVEMENT DISORDER [None]
  - INFLUENZA LIKE ILLNESS [None]
  - CHILLS [None]
  - FEELING HOT [None]
  - DIARRHOEA [None]
  - FEELING ABNORMAL [None]
